FAERS Safety Report 4377035-0 (Version None)
Quarter: 2004Q2

REPORT INFORMATION
  Report Type: 
  Country: None (occurrence: None)
  Receive Date: 20040614
  Receipt Date: 20040603
  Transmission Date: 20050107
  Serious: Yes (Other)
  Sender: FDA-Public Use
  Company Number: NL-GLAXOSMITHKLINE-B0334833A

PATIENT
  Age: 57 Year
  Sex: Female

DRUGS (1)
  1. ROSIGLITAZONE MALEATE [Suspect]

REACTIONS (3)
  - BLOOD PRESSURE INCREASED [None]
  - RENAL FAILURE [None]
  - RENAL IMPAIRMENT [None]
